FAERS Safety Report 12476326 (Version 1)
Quarter: 2016Q2

REPORT INFORMATION
  Report Type: Spontaneous
  Country: GB (occurrence: GB)
  Receive Date: 20160617
  Receipt Date: 20160617
  Transmission Date: 20160815
  Serious: Yes (Disabling, Other)
  Sender: FDA-Public Use
  Company Number: GB-PFIZER INC-2016298816

PATIENT
  Age: 74 Year
  Sex: Male
  Weight: 77 kg

DRUGS (10)
  1. DAPAGLIFLOZIN [Concomitant]
     Active Substance: DAPAGLIFLOZIN
     Dosage: 10 MG, 1X/DAY
  2. METFORMIN [Concomitant]
     Active Substance: METFORMIN HYDROCHLORIDE
     Dosage: MODIFIED RELEASE, 1 G, 2X/DAY
  3. TELMISARTAN. [Concomitant]
     Active Substance: TELMISARTAN
     Dosage: 12.5 MG, 1X/DAY
  4. AMLODIPINE MALEATE [Concomitant]
     Active Substance: AMLODIPINE MALEATE
     Dosage: 5 MG, 1X/DAY
  5. ASPIRIN /00002701/ [Concomitant]
     Active Substance: ASPIRIN
     Dosage: 75 MG, 1X/DAY
  6. SILDENAFIL. [Concomitant]
     Active Substance: SILDENAFIL
     Dosage: AS REQUIRED, 50 MG, 1X/DAY
  7. HYDROCHLOROTHIAZIDE. [Concomitant]
     Active Substance: HYDROCHLOROTHIAZIDE
     Dosage: 12.5 MG, 1X/DAY
  8. ATORVASTATIN [Suspect]
     Active Substance: ATORVASTATIN
     Dosage: 20 MG, UNK
  9. DOXAZOSIN [Concomitant]
     Active Substance: DOXAZOSIN\DOXAZOSIN MESYLATE
     Dosage: 1 MG, 1X/DAY
  10. GLIMEPIRIDE. [Concomitant]
     Active Substance: GLIMEPIRIDE
     Dosage: 2 MG, 1X/DAY

REACTIONS (4)
  - Decreased appetite [Recovered/Resolved]
  - Abdominal pain upper [Recovered/Resolved]
  - Pancreatitis acute [Recovered/Resolved]
  - Abnormal loss of weight [Unknown]

NARRATIVE: CASE EVENT DATE: 20160310
